FAERS Safety Report 9933081 (Version 4)
Quarter: 2014Q3

REPORT INFORMATION
  Report Type: Spontaneous
  Country: US (occurrence: None)
  Receive Date: 20140226
  Receipt Date: 20140916
  Transmission Date: 20150326
  Serious: Yes (Hospitalization, Other)
  Sender: FDA-Public Use
  Company Number: 2012-001788

PATIENT
  Age: 87 Year
  Sex: Female
  Weight: 66.7 kg

DRUGS (7)
  1. FOSAMAX [Suspect]
     Active Substance: ALENDRONATE SODIUM
     Indication: OSTEOPOROSIS
     Route: 048
     Dates: start: 2005, end: 200807
  2. ACTONEL [Suspect]
     Active Substance: RISEDRONATE SODIUM
     Indication: OSTEOPOROSIS
     Route: 048
     Dates: start: 20090210
  3. FOSAMAX PLUS D [Suspect]
     Active Substance: ALENDRONATE SODIUM\CHOLECALCIFEROL
     Indication: OSTEOPOROSIS
     Dosage: DOSAGE AND FREQUENCY UNKNOWN, ORAL
     Route: 048
  4. LEVOTHYROXINE (LEVOTHYROXINE) [Concomitant]
     Active Substance: LEVOTHYROXINE
  5. NYSTATIN W/TRIAMCINOLONE (NYSTATINE, TRIAMINOLONE ACETONIDE [Concomitant]
  6. RANITIDINE [Concomitant]
     Active Substance: RANITIDINE\RANITIDINE HYDROCHLORIDE
  7. ALENDRONATE SODIUM. [Suspect]
     Active Substance: ALENDRONATE SODIUM
     Indication: OSTEOPOROSIS
     Dosage: DOSAGE AND FREQUENCY UNKNOWN, ORAL
     Route: 048

REACTIONS (18)
  - Bone graft [None]
  - Periprosthetic fracture [None]
  - Comminuted fracture [None]
  - Fall [None]
  - Loss of anatomical alignment after fracture reduction [None]
  - Pain [None]
  - Femur fracture [None]
  - Low turnover osteopathy [None]
  - Stress fracture [None]
  - Pain in extremity [None]
  - Skeletal injury [None]
  - Device failure [None]
  - Fracture nonunion [None]
  - Purulence [None]
  - Post procedural infection [None]
  - Toxicity to various agents [None]
  - Staphylococcus test positive [None]
  - Fracture displacement [None]

NARRATIVE: CASE EVENT DATE: 20070830
